FAERS Safety Report 9380807 (Version 3)
Quarter: 2014Q1

REPORT INFORMATION
  Report Type: Spontaneous
  Country: US (occurrence: US)
  Receive Date: 20130702
  Receipt Date: 20140107
  Transmission Date: 20141002
  Serious: Yes (Hospitalization)
  Sender: FDA-Public Use
  Company Number: US-B.I. PHARMACEUTICALS,INC./RIDGEFIELD-2013-BI-18735BP

PATIENT
  Sex: Female
  Weight: 111.13 kg

DRUGS (16)
  1. PRADAXA [Suspect]
     Indication: ATRIAL FIBRILLATION
     Dosage: 300 MG
     Route: 048
     Dates: start: 20110708, end: 20110824
  2. PRADAXA [Suspect]
     Indication: ANTICOAGULANT THERAPY
  3. ALEVE [Suspect]
     Indication: ARTHRALGIA
  4. HEPARIN [Suspect]
     Indication: ATRIAL FIBRILLATION
  5. PLAVIX [Suspect]
     Route: 048
  6. AMIODARONE [Concomitant]
     Indication: ARRHYTHMIA
     Dosage: 200 MG
     Route: 048
  7. CALCIUM [Concomitant]
     Dosage: 1200 MG
     Route: 048
  8. CRESTOR [Concomitant]
     Dosage: 40 MG
     Route: 048
  9. FUROSEMIDE [Concomitant]
     Indication: DIURETIC THERAPY
     Dosage: 40 MG
     Route: 048
  10. LANTUS [Concomitant]
     Dosage: 100 U
     Route: 058
  11. LISINOPRIL [Concomitant]
     Dosage: 40 MG
     Route: 048
  12. MAGNESIUM OXIDE [Concomitant]
     Dosage: 400 MG
     Route: 048
  13. METOPROLOL SUCCINATE [Concomitant]
     Dosage: 100 MG
     Route: 048
  14. POTASSIUM [Concomitant]
     Dosage: 20 MEQ
     Route: 048
  15. WELCHOL [Concomitant]
     Dosage: 3.75 MG
     Route: 048
  16. ZOLOFT [Concomitant]
     Dosage: 200 MG
     Route: 048

REACTIONS (8)
  - Upper gastrointestinal haemorrhage [Recovered/Resolved]
  - Anaemia [Unknown]
  - Lower gastrointestinal haemorrhage [Unknown]
  - Acute myocardial infarction [Unknown]
  - Atrial fibrillation [Not Recovered/Not Resolved]
  - Atrial flutter [Not Recovered/Not Resolved]
  - Intermittent claudication [Unknown]
  - Anticoagulation drug level above therapeutic [Unknown]
